FAERS Safety Report 7251397-9 (Version None)
Quarter: 2011Q1

REPORT INFORMATION
  Report Type: 
  Country: None (occurrence: None)
  Receive Date: 20110128
  Receipt Date: 20110117
  Transmission Date: 20110831
  Serious: Yes (Other)
  Sender: FDA-Public Use
  Company Number: JP-BAYER-2011-003713

PATIENT
  Age: 82 Year

DRUGS (3)
  1. ACETYLSALICYLIC ACID SRT [Suspect]
     Indication: CEREBRAL INFARCTION
     Dosage: 81 MG, QD
     Route: 048
  2. AMARYL [Suspect]
     Indication: DIABETES MELLITUS
     Dosage: 1 MG, QD
     Route: 048
  3. NU-LOTAN [Suspect]
     Indication: HYPERTENSION
     Dosage: 50 MG, QD
     Route: 048

REACTIONS (8)
  - DIZZINESS [None]
  - BALLISMUS [None]
  - SOMNOLENCE [None]
  - URINARY INCONTINENCE [None]
  - DISORIENTATION [None]
  - ISCHAEMIC STROKE [None]
  - ALTERED STATE OF CONSCIOUSNESS [None]
  - HYPOGLYCAEMIA [None]
